FAERS Safety Report 8343166-3 (Version None)
Quarter: 2012Q2

REPORT INFORMATION
  Report Type: 
  Country: None (occurrence: None)
  Receive Date: 20120508
  Receipt Date: 20120502
  Transmission Date: 20120825
  Serious: Yes (Life-Threatening, Hospitalization)
  Sender: FDA-Public Use
  Company Number: FR-PFIZER INC-2012107625

PATIENT
  Age: 85 Year
  Sex: Female

DRUGS (3)
  1. FLUCONAZOLE [Suspect]
     Dosage: 200 MG, 1X/DAY
     Route: 048
     Dates: start: 20120302, end: 20120308
  2. PREVISCAN [Suspect]
     Dosage: 20 MG ONE DAY AND 15 MG THE OTHER DAY
     Route: 048
     Dates: start: 20120201, end: 20120308
  3. PREVISCAN [Suspect]
     Dosage: 10 MG DAILY

REACTIONS (3)
  - INTERNATIONAL NORMALISED RATIO INCREASED [None]
  - PERICARDIAL HAEMORRHAGE [None]
  - ANAEMIA [None]
